FAERS Safety Report 13182571 (Version 1)
Quarter: 2017Q1

REPORT INFORMATION
  Report Type: Spontaneous
  Country: GB (occurrence: GB)
  Receive Date: 20170202
  Receipt Date: 20170202
  Transmission Date: 20170428
  Serious: Yes (Other)
  Sender: FDA-Public Use
  Company Number: GB-AUROBINDO-AUR-APL-2017-28168

PATIENT
  Age: 77 Year
  Sex: Male
  Weight: 80 kg

DRUGS (2)
  1. FUROSEMIDE 20 MG [Suspect]
     Active Substance: FUROSEMIDE
     Indication: OEDEMA PERIPHERAL
     Route: 048
     Dates: start: 20160629, end: 20170105
  2. LOSARTAN 100MG [Suspect]
     Active Substance: LOSARTAN
     Indication: ESSENTIAL HYPERTENSION
     Dosage: 100 MG, ONCE A DAY
     Route: 048
     Dates: start: 20030507, end: 20170105

REACTIONS (5)
  - Oedema [Unknown]
  - Confusional state [Unknown]
  - Blood osmolarity decreased [Recovered/Resolved]
  - Pleural effusion [Unknown]
  - Hyponatraemia [Recovered/Resolved]

NARRATIVE: CASE EVENT DATE: 20161128
